FAERS Safety Report 9246645 (Version 2)
Quarter: 2013Q2

REPORT INFORMATION
  Report Type: Spontaneous
  Country: BR (occurrence: BR)
  Receive Date: 20130422
  Receipt Date: 20130528
  Transmission Date: 20140414
  Serious: Yes (Other)
  Sender: FDA-Public Use
  Company Number: BR-ASTRAZENECA-2013SE25161

PATIENT
  Age: 647 Month
  Sex: Female
  Weight: 61 kg

DRUGS (7)
  1. VIMOVO [Suspect]
     Indication: ARTHRALGIA
     Dosage: 500 + 200 MG TWO TIMES A DAY
     Route: 048
     Dates: start: 20130409
  2. VIMOVO [Suspect]
     Indication: FINGER DEFORMITY
     Dosage: 500 + 200 MG TWO TIMES A DAY
     Route: 048
     Dates: start: 20130409
  3. VIMOVO [Suspect]
     Indication: ARTHRALGIA
     Dosage: AS REQUIRED
     Route: 048
  4. VIMOVO [Suspect]
     Indication: FINGER DEFORMITY
     Dosage: AS REQUIRED
     Route: 048
  5. SELOZOK [Suspect]
     Indication: HYPERTENSION
     Dosage: DAILY
     Route: 048
     Dates: start: 2011
  6. FLAVENO [Concomitant]
     Indication: PAIN IN EXTREMITY
     Dates: start: 2009
  7. RIVOTRIL [Concomitant]
     Dates: start: 2009

REACTIONS (7)
  - Headache [Recovered/Resolved]
  - Nausea [Recovered/Resolved]
  - Somnolence [Recovered/Resolved]
  - Arthralgia [Recovered/Resolved]
  - Finger deformity [Not Recovered/Not Resolved]
  - Musculoskeletal pain [Recovering/Resolving]
  - Off label use [Not Recovered/Not Resolved]
